FAERS Safety Report 17957539 (Version 2)
Quarter: 2020Q3

REPORT INFORMATION
  Report Type: Report from Study
  Country: UA (occurrence: UA)
  Receive Date: 20200629
  Receipt Date: 20200702
  Transmission Date: 20201103
  Serious: Yes (Death, Life-Threatening, Hospitalization)
  Sender: FDA-Public Use
  Company Number: UA-EISAI MEDICAL RESEARCH-EC-2020-074681

PATIENT
  Age: 64 Year
  Sex: Female
  Weight: 83 kg

DRUGS (30)
  1. BERLITHION [Concomitant]
     Dates: start: 20200128
  2. EUPHYLLIN [Concomitant]
     Dates: start: 20200408
  3. PEMBROLIZUMAB. [Suspect]
     Active Substance: PEMBROLIZUMAB
     Indication: ENDOMETRIAL CANCER
     Route: 041
     Dates: start: 20191216, end: 20200219
  4. MONOPROST [Concomitant]
     Active Substance: LATANOPROST
     Dates: start: 201901
  5. GLUTARGIN [Concomitant]
     Dates: start: 20200403, end: 20200407
  6. CARDIOMAGNYL [Concomitant]
     Active Substance: ASPIRIN\MAGNESIUM HYDROXIDE
     Dates: start: 20200313
  7. BIOCERULIN [Concomitant]
     Dates: start: 20200408
  8. PANANGIN [Concomitant]
     Active Substance: MAGNESIUM ASPARTATE\POTASSIUM ASPARTATE
     Dates: start: 20200413
  9. BISOPROLOL [Concomitant]
     Active Substance: BISOPROLOL
     Dates: start: 200201
  10. GLUCOPHAGE [Concomitant]
     Active Substance: METFORMIN HYDROCHLORIDE
     Dates: start: 20200128
  11. CANEPHRON [Concomitant]
     Active Substance: HERBALS
     Dates: start: 20200312
  12. CONTRIVEN [Concomitant]
     Dates: start: 20200403
  13. OMEPRAZOLE. [Concomitant]
     Active Substance: OMEPRAZOLE
     Dates: start: 20200404
  14. PREDNISOLONE. [Concomitant]
     Active Substance: PREDNISOLONE
     Dates: start: 20200417, end: 20200422
  15. PREDNISOLONE. [Concomitant]
     Active Substance: PREDNISOLONE
     Dates: start: 20200403, end: 20200409
  16. PEMBROLIZUMAB. [Suspect]
     Active Substance: PEMBROLIZUMAB
     Route: 041
     Dates: start: 20200312, end: 20200312
  17. FUROSEMIDE. [Concomitant]
     Active Substance: FUROSEMIDE
     Dates: start: 20200408
  18. ESSENTIALE FORTE [Concomitant]
     Dates: start: 20200413
  19. CHOPHYTOL [Concomitant]
     Dates: start: 20200413
  20. LENVATINIB [Suspect]
     Active Substance: LENVATINIB
     Indication: ENDOMETRIAL CANCER
     Route: 048
     Dates: start: 20191216, end: 20200402
  21. GLUTARGIN [Concomitant]
     Dates: start: 20191213
  22. HEPTRAL [Concomitant]
     Active Substance: ADEMETIONINE
     Dates: start: 20200408
  23. ELECTROLYTES NOS [Concomitant]
     Active Substance: ELECTROLYTES NOS
     Dates: start: 20200408
  24. XYLAT [Concomitant]
     Dates: start: 20200413
  25. PREDNISOLONE. [Concomitant]
     Active Substance: PREDNISOLONE
     Dates: start: 20200410, end: 20200416
  26. ASPARCAM [Concomitant]
     Dates: start: 20200403, end: 20200408
  27. PANGROL [Concomitant]
     Active Substance: PANCRELIPASE
     Dates: start: 20200408, end: 20200417
  28. PREDNISOLONE. [Suspect]
     Active Substance: PREDNISOLONE
     Indication: LIPASE INCREASED
     Route: 042
     Dates: start: 20200427
  29. XARELTO [Concomitant]
     Active Substance: RIVAROXABAN
     Dates: start: 20200219
  30. PROXIUM [Concomitant]
     Dates: start: 20200408

REACTIONS (3)
  - Ischaemic stroke [Fatal]
  - Acute myocardial infarction [Fatal]
  - Blood potassium decreased [Unknown]

NARRATIVE: CASE EVENT DATE: 20200421
